FAERS Safety Report 14462289 (Version 1)
Quarter: 2018Q1

REPORT INFORMATION
  Report Type: Spontaneous
  Country: NO (occurrence: NO)
  Receive Date: 20180130
  Receipt Date: 20180130
  Transmission Date: 20180509
  Serious: Yes (Hospitalization)
  Sender: FDA-Public Use
  Company Number: NO-ELI_LILLY_AND_COMPANY-NO201801008626

PATIENT
  Age: 92 Year
  Sex: Male

DRUGS (10)
  1. HEMINEVRIN                         /00027501/ [Concomitant]
     Active Substance: CLOMETHIAZOLE
     Indication: RESTLESSNESS
     Dosage: 300 MG, PRN
     Route: 065
  2. FUROSEMIDE. [Concomitant]
     Active Substance: FUROSEMIDE
     Indication: PRODUCT USED FOR UNKNOWN INDICATION
     Dosage: 20 MG, DAILY
     Route: 065
  3. ZYPREXA [Suspect]
     Active Substance: OLANZAPINE
     Dosage: UNK UNK, UNKNOWN
     Route: 065
     Dates: start: 20180116, end: 20180117
  4. APODORM [Suspect]
     Active Substance: NITRAZEPAM
     Dosage: 5 MG, EACH EVENING
     Route: 065
     Dates: start: 201801
  5. REMERON [Suspect]
     Active Substance: MIRTAZAPINE
     Indication: ANTIDEPRESSANT THERAPY
     Dosage: 30 MG, EACH EVENING
     Route: 065
     Dates: start: 20171108
  6. METOPROLOL SANDOZ                  /00376902/ [Concomitant]
     Active Substance: METOPROLOL
     Indication: PRODUCT USED FOR UNKNOWN INDICATION
     Dosage: 25 MG, DAILY
     Route: 065
  7. ZYPREXA [Suspect]
     Active Substance: OLANZAPINE
     Indication: PRODUCT USED FOR UNKNOWN INDICATION
     Dosage: 2.5 MG, UNKNOWN
     Route: 065
     Dates: start: 20180102, end: 201801
  8. ZYPREXA [Suspect]
     Active Substance: OLANZAPINE
     Dosage: 10 MG, UNKNOWN
     Route: 065
     Dates: start: 201801, end: 20180115
  9. APODORM [Suspect]
     Active Substance: NITRAZEPAM
     Indication: PRODUCT USED FOR UNKNOWN INDICATION
     Dosage: 10 MG, EACH EVENING
     Route: 065
     Dates: end: 201801
  10. HEMINEVRIN                         /00027501/ [Concomitant]
     Active Substance: CLOMETHIAZOLE
     Dosage: 600 MG, EACH EVENING
     Route: 065

REACTIONS (22)
  - Fatigue [Recovering/Resolving]
  - Confusional state [Unknown]
  - Abdominal pain upper [Unknown]
  - Mastication disorder [Unknown]
  - Blood pressure increased [Unknown]
  - Depressed level of consciousness [Unknown]
  - Speech disorder [Recovering/Resolving]
  - Heart rate increased [Unknown]
  - Somnolence [Recovering/Resolving]
  - Restlessness [Unknown]
  - Macule [Unknown]
  - Pulse abnormal [Unknown]
  - Abnormal behaviour [Unknown]
  - Insomnia [Unknown]
  - Dysstasia [Recovering/Resolving]
  - Tremor [Unknown]
  - Face oedema [Unknown]
  - Drooling [Unknown]
  - Dyskinesia [Recovering/Resolving]
  - Heart rate irregular [Unknown]
  - Oedema peripheral [Unknown]
  - Off label use [Recovered/Resolved]

NARRATIVE: CASE EVENT DATE: 201801
